FAERS Safety Report 7795360-8 (Version None)
Quarter: 2011Q3

REPORT INFORMATION
  Report Type: 
  Country: None (occurrence: None)
  Receive Date: 20110930
  Receipt Date: 20110908
  Transmission Date: 20111222
  Serious: Yes (Hospitalization)
  Sender: FDA-Public Use
  Company Number: JPI-P-016998

PATIENT
  Age: 45 Year
  Sex: Male
  Weight: 81.6475 kg

DRUGS (2)
  1. XYREM [Suspect]
     Indication: CATAPLEXY
     Dosage: 6 GM (3 GM, 2 IN 1 D), ORAL, 4 GM 1ST DOSE/3 GM 2ND DOSE/3GM 3RD DOSE), ORAL
     Route: 048
     Dates: start: 20090721
  2. XYREM [Suspect]
     Indication: SOMNOLENCE
     Dosage: 6 GM (3 GM, 2 IN 1 D), ORAL, 4 GM 1ST DOSE/3 GM 2ND DOSE/3GM 3RD DOSE), ORAL
     Route: 048
     Dates: start: 20090721

REACTIONS (4)
  - ARTHRITIS [None]
  - MYALGIA [None]
  - BONE PAIN [None]
  - DRUG INEFFECTIVE [None]
